FAERS Safety Report 8176183-7 (Version None)
Quarter: 2012Q1

REPORT INFORMATION
  Report Type: 
  Country: None (occurrence: None)
  Receive Date: 20120301
  Receipt Date: 20120223
  Transmission Date: 20120608
  Serious: Yes (Other)
  Sender: FDA-Public Use
  Company Number: FR-UCBSA-052214

PATIENT
  Age: 1 Month
  Sex: Male
  Weight: 3.5 kg

DRUGS (2)
  1. KEPPRA [Suspect]
     Route: 048
     Dates: start: 20120112, end: 20120115
  2. KEPPRA [Suspect]
     Dates: start: 20120109, end: 20120101

REACTIONS (3)
  - OVERDOSE [None]
  - DRUG ADMINISTRATION ERROR [None]
  - INCORRECT DOSE ADMINISTERED [None]
